FAERS Safety Report 10079131 (Version 1)
Quarter: 2014Q2

REPORT INFORMATION
  Report Type: Spontaneous
  Country: GB (occurrence: GB)
  Receive Date: 20140415
  Receipt Date: 20140415
  Transmission Date: 20141212
  Serious: Yes (Other)
  Sender: FDA-Public Use
  Company Number: GB-ACTAVIS-2014-07066

PATIENT
  Age: 74 Year
  Sex: Male

DRUGS (2)
  1. ZOLEDRONIC ACID [Suspect]
     Indication: METASTATIC PAIN
     Dosage: UNK,SINGLE
     Route: 042
  2. ZOLEDRONIC ACID [Suspect]
     Dosage: UNK,SINGLE
     Route: 042

REACTIONS (1)
  - Optic neuritis [Recovered/Resolved]
